FAERS Safety Report 8771079 (Version 2)
Quarter: 2012Q4

REPORT INFORMATION
  Report Type: 
  Country: US (occurrence: US)
  Receive Date: 20120906
  Receipt Date: 20121019
  Transmission Date: 20130627
  Serious: Yes (Other)
  Sender: FDA-Public Use
  Company Number: US-PFIZER INC-2012215271

PATIENT
  Age: 24 Year
  Sex: Female
  Weight: 70 kg

DRUGS (3)
  1. NEURONTIN [Suspect]
     Indication: ENDOMETRIOSIS
     Dosage: 900 mg, 3x/day
     Dates: start: 2009
  2. NEURONTIN [Suspect]
     Indication: PAIN
     Dosage: UNK
     Dates: end: 20120820
  3. ALBUTEROL [Concomitant]
     Indication: ASTHMA
     Dosage: UNK (one or two puffs every 5 minutes), as needed

REACTIONS (3)
  - Hypothyroidism [Unknown]
  - Drug administration error [Unknown]
  - Pain [Not Recovered/Not Resolved]
